FAERS Safety Report 21378837 (Version 1)
Quarter: 2022Q3

REPORT INFORMATION
  Report Type: Spontaneous
  Country: DE (occurrence: DE)
  Receive Date: 20220927
  Receipt Date: 20220927
  Transmission Date: 20221027
  Serious: Yes (Hospitalization, Other)
  Sender: FDA-Public Use
  Company Number: DE-ADRED-07868-01

PATIENT
  Age: 69 Year
  Sex: Male
  Weight: 80 kg

DRUGS (1)
  1. IBUPROFEN [Suspect]
     Active Substance: IBUPROFEN
     Indication: Product used for unknown indication
     Dosage: 600 MILLIGRAM, REQUIREMENT
     Route: 065

REACTIONS (6)
  - Renal impairment [Unknown]
  - Pulmonary embolism [Unknown]
  - Anaemia [Unknown]
  - Dyspnoea [Unknown]
  - General physical health deterioration [Unknown]
  - Condition aggravated [Unknown]
